FAERS Safety Report 9522452 (Version 8)
Quarter: 2014Q2

REPORT INFORMATION
  Report Type: Spontaneous
  Country: US (occurrence: US)
  Receive Date: 20130913
  Receipt Date: 20140409
  Transmission Date: 20141212
  Serious: Yes (Hospitalization, Disabling, Other)
  Sender: FDA-Public Use
  Company Number: US-009507513-1309USA003682

PATIENT
  Sex: Female
  Weight: 65 kg

DRUGS (7)
  1. FOSAMAX [Suspect]
     Indication: OSTEOPOROSIS
     Dosage: 70 MG, QW
     Route: 048
     Dates: start: 20040404, end: 20080817
  2. FOSAMAX [Suspect]
     Dosage: UNK
     Route: 048
  3. ALENDRONATE SODIUM [Suspect]
     Indication: OSTEOPOROSIS
     Dosage: 70 MG, QW
     Route: 048
     Dates: start: 20080808, end: 20101227
  4. CORTICOSTEROIDS (UNSPECIFIED) [Concomitant]
     Dosage: UNK
     Dates: start: 199304
  5. PREDNISONE [Concomitant]
     Indication: POLYMYALGIA RHEUMATICA
     Dosage: 3 MG, QD
  6. CRESTOR [Concomitant]
     Indication: HYPERCHOLESTEROLAEMIA
  7. VYTORIN [Concomitant]
     Indication: HYPERCHOLESTEROLAEMIA

REACTIONS (55)
  - Femur fracture [Recovering/Resolving]
  - Intramedullary rod insertion [Not Recovered/Not Resolved]
  - Hearing impaired [Unknown]
  - Haemorrhagic anaemia [Recovering/Resolving]
  - Renal failure [Unknown]
  - Low turnover osteopathy [Not Recovered/Not Resolved]
  - Vascular operation [Unknown]
  - Surgery [Unknown]
  - Surgery [Unknown]
  - Coronary artery disease [Unknown]
  - Coronary artery bypass [Unknown]
  - Medical device removal [Unknown]
  - Rheumatoid arthritis [Unknown]
  - Symphysiolysis [Unknown]
  - Vascular calcification [Unknown]
  - Stress urinary incontinence [Unknown]
  - Peripheral vascular disorder [Unknown]
  - Chronic obstructive pulmonary disease [Not Recovered/Not Resolved]
  - Polyneuropathy [Unknown]
  - Blood albumin decreased [Unknown]
  - Protein total decreased [Unknown]
  - Immunoglobulins decreased [Unknown]
  - Skin abrasion [Unknown]
  - Radius fracture [Unknown]
  - Skin abrasion [Unknown]
  - Joint injury [Unknown]
  - Rotator cuff syndrome [Unknown]
  - Rotator cuff syndrome [Unknown]
  - Wound [Unknown]
  - Femoral artery occlusion [Unknown]
  - Skin abrasion [Unknown]
  - Peripheral artery stenosis [Unknown]
  - Arthritis [Unknown]
  - Arthritis [Unknown]
  - Oophorectomy bilateral [Unknown]
  - Intervertebral disc disorder [Unknown]
  - Spinal column stenosis [Unknown]
  - Vertebral foraminal stenosis [Unknown]
  - Uterine dilation and curettage [Unknown]
  - Bladder operation [Unknown]
  - Hysterectomy [Unknown]
  - Unevaluable event [Unknown]
  - Skin lesion [Unknown]
  - Nasopharyngitis [Unknown]
  - Pulse abnormal [Unknown]
  - Groin pain [Unknown]
  - Muscle atrophy [Unknown]
  - Renal artery stenosis [Unknown]
  - Arterial stenosis [Unknown]
  - Arterial occlusive disease [Unknown]
  - Osteopenia [Unknown]
  - Back pain [Not Recovered/Not Resolved]
  - Constipation [Unknown]
  - Pain in extremity [Unknown]
  - Arthralgia [Unknown]
